FAERS Safety Report 10224474 (Version 1)
Quarter: 2014Q1

REPORT INFORMATION
  Report Type: Spontaneous
  Country: US (occurrence: None)
  Receive Date: 20140306
  Receipt Date: 20140306
  Transmission Date: 20141002
  Serious: Yes (Other)
  Sender: FDA-Public Use
  Company Number: 163-21880-13093547

PATIENT
  Age: 77 Year
  Sex: Female
  Weight: 49 kg

DRUGS (4)
  1. REVLIMID [Suspect]
     Indication: PLASMA CELL MYELOMA
     Route: 048
     Dates: start: 20120111
  2. ASPIRIN (ACETYLSALICYLIC ACID) (CHEWABLE TABLET) [Concomitant]
  3. DEXAMETHASONE (DEXAMETHASONE) (TABLETS) [Concomitant]
  4. FUROSEMIDE (FUROSEMIDE) (TABLETS) [Concomitant]

REACTIONS (7)
  - Hypersensitivity [None]
  - Drug dose omission [None]
  - Blood potassium decreased [None]
  - Constipation [None]
  - Dry mouth [None]
  - Pruritus [None]
  - Dry skin [None]
